FAERS Safety Report 9398108 (Version 1)
Quarter: 2013Q3

REPORT INFORMATION
  Report Type: Spontaneous
  Country: US (occurrence: US)
  Receive Date: 20130712
  Receipt Date: 20130712
  Transmission Date: 20140515
  Serious: No
  Sender: FDA-Public Use
  Company Number: US-GLAXOSMITHKLINE-A0982893A

PATIENT
  Age: 79 Year
  Sex: Female

DRUGS (3)
  1. FLOVENT [Suspect]
     Indication: ASTHMA
     Dosage: 2PUFF TWICE PER DAY
     Route: 055
     Dates: start: 20120621, end: 20120627
  2. PREDNISONE [Concomitant]
  3. LASIX [Concomitant]

REACTIONS (9)
  - Rash [Not Recovered/Not Resolved]
  - Rash [Unknown]
  - Eye swelling [Unknown]
  - Swelling face [Unknown]
  - Drug ineffective [Unknown]
  - Eyelids pruritus [Unknown]
  - Eye colour change [Unknown]
  - Hypersensitivity [Unknown]
  - Skin discolouration [Unknown]
